FAERS Safety Report 14549459 (Version 2)
Quarter: 2019Q1

REPORT INFORMATION
  Report Type: Spontaneous
  Country: ES (occurrence: ES)
  Receive Date: 20180219
  Receipt Date: 20190205
  Transmission Date: 20190417
  Serious: Yes (Hospitalization, Other)
  Sender: FDA-Public Use
  Company Number: ES-ZYDUS-019071

PATIENT
  Age: 78 Year
  Sex: Female

DRUGS (9)
  1. ACICLOVIR [Suspect]
     Active Substance: ACYCLOVIR
     Indication: ENCEPHALITIS AUTOIMMUNE
     Route: 042
  2. PREDNISONE. [Concomitant]
     Active Substance: PREDNISONE
     Indication: ENCEPHALITIS AUTOIMMUNE
     Route: 048
  3. SERTRALINE [Concomitant]
     Active Substance: SERTRALINE HYDROCHLORIDE
     Indication: DEPRESSION
     Route: 048
  4. IMMUNE GLOBULIN NOS [Concomitant]
     Active Substance: IMMUNE GLOBULIN NOS
     Indication: ENCEPHALITIS AUTOIMMUNE
  5. ENOXAPARIN/ENOXAPARIN SODIUM [Concomitant]
     Indication: PRODUCT USED FOR UNKNOWN INDICATION
     Route: 058
  6. METHYLPREDNISOLONE. [Concomitant]
     Active Substance: METHYLPREDNISOLONE
     Indication: ENCEPHALITIS AUTOIMMUNE
     Route: 042
  7. LEVOFLOXACIN. [Suspect]
     Active Substance: LEVOFLOXACIN
     Indication: MENINGOENCEPHALITIS HERPETIC
     Route: 042
  8. VITAMIN K NOS [Concomitant]
     Active Substance: DIETARY SUPPLEMENT\ MENAQUINONE 6\PHYTONADIONE
     Indication: PRODUCT USED FOR UNKNOWN INDICATION
     Route: 065
  9. LEVOFLOXACIN. [Suspect]
     Active Substance: LEVOFLOXACIN
     Indication: MENINGOENCEPHALITIS HERPETIC
     Route: 042

REACTIONS (4)
  - Factor XIII deficiency [Recovered/Resolved]
  - Peripheral swelling [Recovered/Resolved]
  - Haematoma [Recovered/Resolved]
  - Pancytopenia [Unknown]
